FAERS Safety Report 12124849 (Version 1)
Quarter: 2016Q1

REPORT INFORMATION
  Report Type: Spontaneous
  Country: CA (occurrence: CA)
  Receive Date: 20160229
  Receipt Date: 20160229
  Transmission Date: 20160526
  Serious: Yes (Death)
  Sender: FDA-Public Use
  Company Number: CA-009507513-1602CAN012528

PATIENT
  Sex: Female
  Weight: 52.3 kg

DRUGS (1)
  1. KEYTRUDA [Suspect]
     Active Substance: PEMBROLIZUMAB
     Indication: MALIGNANT MELANOMA
     Dosage: 105 MG, EVERY 3 WEEKS (Q3WEEKS)
     Route: 042
     Dates: start: 20150813

REACTIONS (1)
  - Death [Fatal]
